FAERS Safety Report 4586486-0 (Version None)
Quarter: 2005Q1

REPORT INFORMATION
  Report Type: 
  Country: None (occurrence: None)
  Receive Date: 20050214
  Receipt Date: 20050131
  Transmission Date: 20050727
  Serious: Yes (Hospitalization)
  Sender: FDA-Public Use
  Company Number: 2005024388

PATIENT
  Age: 28 Year
  Sex: Female
  Weight: 57 kg

DRUGS (1)
  1. FLUCONAZOLE [Suspect]
     Indication: VAGINAL MYCOSIS
     Dosage: 200 MG
     Dates: start: 20050102, end: 20050102

REACTIONS (2)
  - ABORTION SPONTANEOUS [None]
  - DRUG EXPOSURE DURING PREGNANCY [None]
